FAERS Safety Report 24956511 (Version 3)
Quarter: 2025Q3

REPORT INFORMATION
  Report Type: Report from Study
  Country: US (occurrence: US)
  Receive Date: 20250211
  Receipt Date: 20250809
  Transmission Date: 20251021
  Serious: No
  Sender: ALEXION PHARMACEUTICALS
  Company Number: US-ASTRAZENECA-202502USA003402US

PATIENT
  Age: 31 Year
  Sex: Female

DRUGS (1)
  1. STRENSIQ [Suspect]
     Active Substance: ASFOTASE ALFA
     Dosage: UNK, Q2W
     Route: 065

REACTIONS (22)
  - Weight increased [Unknown]
  - Malaise [Unknown]
  - Asthenia [Unknown]
  - Poor quality sleep [Unknown]
  - Arthralgia [Unknown]
  - Dizziness [Unknown]
  - Temperature intolerance [Unknown]
  - Myalgia [Unknown]
  - Hypoglycaemia [Unknown]
  - Drug intolerance [Unknown]
  - Hirsutism [Unknown]
  - Blood creatinine decreased [Unknown]
  - Blood potassium decreased [Unknown]
  - Blood alkaline phosphatase decreased [Unknown]
  - Blood calcium decreased [Unknown]
  - Blood urea nitrogen/creatinine ratio increased [Unknown]
  - Vitamin D decreased [Unknown]
  - Blood urea decreased [Unknown]
  - Aspartate aminotransferase decreased [Unknown]
  - Blood cholesterol decreased [Unknown]
  - Vitamin D increased [Unknown]
  - Inappropriate schedule of product administration [Unknown]

NARRATIVE: CASE EVENT DATE: 20240206
